FAERS Safety Report 16634762 (Version 1)
Quarter: 2019Q3

REPORT INFORMATION
  Report Type: Spontaneous
  Country: FR (occurrence: FR)
  Receive Date: 20190726
  Receipt Date: 20190726
  Transmission Date: 20191004
  Serious: Yes (Other)
  Sender: FDA-Public Use
  Company Number: FR-SUN PHARMACEUTICAL INDUSTRIES LTD-2019RR-215228

PATIENT

DRUGS (3)
  1. PERGOVERIS [Suspect]
     Active Substance: FOLLITROPIN\LUTROPIN ALFA
     Indication: CONTROLLED OVARIAN STIMULATION
     Dosage: 250 INTERNATIONAL UNIT, DAILY
     Route: 058
     Dates: start: 20190405, end: 20190407
  2. FYREMADEL 0,25 MG/0,5 ML SOLUTION INJECTABLE EN SERINGUE PR?-REMPLIE [Suspect]
     Active Substance: GANIRELIX ACETATE
     Indication: CONTROLLED OVARIAN STIMULATION
     Dosage: 1 DOSAGE FORM, DAILY
     Route: 058
     Dates: start: 20190405, end: 20190407
  3. JASMINELLE [Suspect]
     Active Substance: DROSPIRENONE
     Indication: ORAL CONTRACEPTION
     Dosage: 1 DOSAGE FORM, DAILY
     Route: 048
     Dates: start: 200301, end: 20190329

REACTIONS (1)
  - Deep vein thrombosis [Not Recovered/Not Resolved]

NARRATIVE: CASE EVENT DATE: 20190407
